FAERS Safety Report 13110031 (Version 2)
Quarter: 2017Q1

REPORT INFORMATION
  Report Type: Report from Study
  Country: US (occurrence: US)
  Receive Date: 20170112
  Receipt Date: 20170217
  Transmission Date: 20170428
  Serious: Yes (Hospitalization, Other)
  Sender: FDA-Public Use
  Company Number: US-BAYER-2016-091124

PATIENT
  Age: 70 Year
  Sex: Male
  Weight: 108.84 kg

DRUGS (7)
  1. NORVASC [Concomitant]
     Active Substance: AMLODIPINE BESYLATE
     Dosage: UNK
  2. ADEMPAS [Suspect]
     Active Substance: RIOCIGUAT
     Indication: PULMONARY ARTERIAL HYPERTENSION
     Dosage: 1 MG, TID
     Route: 048
  3. ADEMPAS [Suspect]
     Active Substance: RIOCIGUAT
     Indication: PULMONARY ARTERIAL HYPERTENSION
     Dosage: 0.5 MG, TID
     Route: 048
     Dates: start: 20160322
  4. ADEMPAS [Suspect]
     Active Substance: RIOCIGUAT
     Indication: PULMONARY ARTERIAL HYPERTENSION
     Dosage: 1 MG, TID
     Route: 048
  5. ADEMPAS [Suspect]
     Active Substance: RIOCIGUAT
     Indication: PULMONARY ARTERIAL HYPERTENSION
     Dosage: 1 MG, TID
     Route: 048
  6. ADEMPAS [Suspect]
     Active Substance: RIOCIGUAT
     Indication: PULMONARY ARTERIAL HYPERTENSION
     Dosage: 1 MG, TID
     Route: 048
  7. APIXABAN [Concomitant]
     Active Substance: APIXABAN
     Dosage: UNK

REACTIONS (18)
  - Asthenia [Unknown]
  - Vision blurred [None]
  - Cardiac failure congestive [Unknown]
  - Dizziness [None]
  - Pneumonia [Unknown]
  - Hypotension [Recovered/Resolved]
  - Dizziness [Unknown]
  - Pain in extremity [None]
  - Ulcer haemorrhage [Unknown]
  - Arthritis [None]
  - Vertigo [None]
  - Hypotension [Unknown]
  - Dizziness [Unknown]
  - Unevaluable event [Unknown]
  - Foot deformity [None]
  - Influenza [Unknown]
  - Thrombosis [None]
  - Haematemesis [Unknown]

NARRATIVE: CASE EVENT DATE: 201702
